FAERS Safety Report 9528037 (Version 1)
Quarter: 2013Q1

REPORT INFORMATION
  Report Type: Spontaneous
  Country: US (occurrence: None)
  Receive Date: 20130313
  Receipt Date: 20130313
  Transmission Date: 20140127
  Serious: No
  Sender: FDA-Public Use
  Company Number: 1000029305

PATIENT
  Age: 65 Year
  Sex: Female
  Weight: 80 kg

DRUGS (7)
  1. SAVELLA [Suspect]
     Indication: FIBROMYALGIA
  2. SAVELLA [Suspect]
     Indication: NEUROPATHY PERIPHERAL
  3. LYRICA [Suspect]
     Indication: FIBROMYALGIA
     Dosage: 10 YEARS AGO - 150 MG (75 MG,2 IN 1 D)
  4. LYRICA [Suspect]
     Indication: NEUROPATHY PERIPHERAL
     Dosage: 10 YEARS AGO - 150 MG (75 MG,2 IN 1 D)
  5. CYMBALTA [Suspect]
     Indication: FIBROMYALGIA
  6. CYMBALTA [Suspect]
     Indication: NEUROPATHY PERIPHERAL
  7. OXYCODONE (OXYCODONE) (OXYCODONE) [Concomitant]

REACTIONS (2)
  - Drug ineffective [None]
  - Off label use [None]
